FAERS Safety Report 5362213-4 (Version None)
Quarter: 2007Q2

REPORT INFORMATION
  Report Type: 
  Country: None (occurrence: None)
  Receive Date: 20070619
  Receipt Date: 20070611
  Transmission Date: 20071010
  Serious: Yes (Hospitalization, Other)
  Sender: FDA-Public Use
  Company Number: PHBS2007JP04923

PATIENT
  Age: 64 Year
  Sex: Female

DRUGS (3)
  1. AREDIA [Suspect]
     Indication: METASTASES TO BONE
     Dosage: UNK, UNK
     Route: 042
     Dates: start: 20040126, end: 20061114
  2. XELODA [Concomitant]
     Dosage: 1800 MG, UNK
     Route: 048
     Dates: start: 20040122, end: 20061114
  3. TAXOTERE [Concomitant]
     Route: 042
     Dates: start: 20050324, end: 20061003

REACTIONS (13)
  - BONE DISORDER [None]
  - COMPUTERISED TOMOGRAM ABNORMAL [None]
  - FISTULA [None]
  - GINGIVAL SWELLING [None]
  - IMPAIRED HEALING [None]
  - INCISIONAL DRAINAGE [None]
  - OSTEONECROSIS [None]
  - SEQUESTRECTOMY [None]
  - STREPTOCOCCAL INFECTION [None]
  - TOOTH EXTRACTION [None]
  - WOUND DEBRIDEMENT [None]
  - WOUND INFECTION [None]
  - X-RAY ABNORMAL [None]
